FAERS Safety Report 17670054 (Version 1)
Quarter: 2020Q2

REPORT INFORMATION
  Report Type: Spontaneous
  Country: US (occurrence: US)
  Receive Date: 20200415
  Receipt Date: 20200415
  Transmission Date: 20200713
  Serious: No
  Sender: FDA-Public Use
  Company Number: US-PFIZER INC-2019349072

PATIENT
  Age: 80 Year
  Sex: Female

DRUGS (1)
  1. LYRICA [Suspect]
     Active Substance: PREGABALIN
     Dosage: 300 MG, AS NEEDED (1 QD (ONCE A DAY) AND 1 QD (ONCE A DAY) PRN (AS NEEDED))
     Route: 048

REACTIONS (1)
  - Burning sensation [Unknown]
